FAERS Safety Report 9106349 (Version 2)
Quarter: 2013Q1

REPORT INFORMATION
  Report Type: Spontaneous
  Country: DE (occurrence: DE)
  Receive Date: 20130221
  Receipt Date: 20130314
  Transmission Date: 20140127
  Serious: Yes (Other)
  Sender: FDA-Public Use
  Company Number: DE-TEVA-385312GER

PATIENT
  Age: 6 Year
  Sex: Male
  Weight: 25 kg

DRUGS (1)
  1. IBUPROFEN [Suspect]
     Indication: PYREXIA
     Dosage: 10 ML DAILY; 5ML-0-5ML, 10 ML DAILY
     Route: 048
     Dates: start: 20130123, end: 20130124

REACTIONS (6)
  - Cognitive disorder [Recovered/Resolved]
  - Anxiety [Recovered/Resolved]
  - Hallucination, visual [Recovered/Resolved]
  - Panic reaction [Recovered/Resolved]
  - Disorientation [Recovered/Resolved]
  - Amnesia [None]
